FAERS Safety Report 20036415 (Version 2)
Quarter: 2022Q1

REPORT INFORMATION
  Report Type: Spontaneous
  Country: US (occurrence: US)
  Receive Date: 20211105
  Receipt Date: 20220126
  Transmission Date: 20220423
  Serious: Yes (Hospitalization, Other)
  Sender: FDA-Public Use
  Company Number: US-BIOVITRUM-2021US9755

PATIENT
  Sex: Female

DRUGS (2)
  1. SYNAGIS [Suspect]
     Active Substance: PALIVIZUMAB
     Indication: Premature baby
     Dosage: (100MG/ML), (50MG/0.5ML)
     Route: 030
     Dates: start: 20211029
  2. SYNAGIS [Suspect]
     Active Substance: PALIVIZUMAB
     Route: 030
     Dates: start: 20211217

REACTIONS (5)
  - Gastrooesophageal reflux disease [Unknown]
  - Reflux gastritis [Unknown]
  - Choking [Unknown]
  - Pulmonary oedema [Unknown]
  - Pulmonary hypertension [Unknown]
